FAERS Safety Report 5035343-4 (Version None)
Quarter: 2006Q2

REPORT INFORMATION
  Report Type: 
  Country: None (occurrence: None)
  Receive Date: 20060523
  Receipt Date: 20050428
  Transmission Date: 20061013
  Serious: Yes (Other)
  Sender: FDA-Public Use
  Company Number: 0504-182

PATIENT
  Sex: Female
  Weight: 72.5755 kg

DRUGS (2)
  1. DUONEB [Suspect]
     Indication: ASTHMA
     Dosage: 4 UNITS, INHALED
  2. DUONEB [Suspect]
     Indication: EMPHYSEMA
     Dosage: 4 UNITS, INHALED

REACTIONS (2)
  - DRUG INEFFECTIVE [None]
  - DYSGEUSIA [None]
